FAERS Safety Report 4655984-3 (Version None)
Quarter: 2005Q2

REPORT INFORMATION
  Report Type: 
  Country: None (occurrence: None)
  Receive Date: 20050506
  Receipt Date: 20050419
  Transmission Date: 20051028
  Serious: Yes (Other)
  Sender: FDA-Public Use
  Company Number: PHEH2005US05092

PATIENT
  Age: 71 Year
  Sex: Female

DRUGS (4)
  1. VINCRISTINE [Concomitant]
  2. ADRIAMYCIN [Concomitant]
  3. DEXAMETHASONE [Concomitant]
  4. ZOMETA [Suspect]
     Indication: MULTIPLE MYELOMA
     Dosage: 4MG, Q 4 WEEKS
     Dates: start: 20030623, end: 20050124

REACTIONS (2)
  - ORAL SURGERY [None]
  - OSTEONECROSIS [None]
